FAERS Safety Report 18744386 (Version 4)
Quarter: 2021Q4

REPORT INFORMATION
  Report Type: Spontaneous
  Country: US (occurrence: None)
  Receive Date: 20210114
  Receipt Date: 20211103
  Transmission Date: 20220303
  Serious: Yes (Hospitalization, Other)
  Sender: FDA-Public Use
  Company Number: 2021A002216

PATIENT
  Age: 20240 Day
  Sex: Male
  Weight: 164.2 kg

DRUGS (25)
  1. FARXIGA [Suspect]
     Active Substance: DAPAGLIFLOZIN PROPANEDIOL
     Indication: Type 2 diabetes mellitus
     Route: 048
     Dates: start: 20180221, end: 201812
  2. FARXIGA [Suspect]
     Active Substance: DAPAGLIFLOZIN PROPANEDIOL
     Indication: Weight decreased
     Route: 048
     Dates: start: 20180221, end: 201812
  3. FARXIGA [Suspect]
     Active Substance: DAPAGLIFLOZIN PROPANEDIOL
     Indication: Blood pressure decreased
     Route: 048
     Dates: start: 20180221, end: 201812
  4. GABAPENTIN [Concomitant]
     Active Substance: GABAPENTIN
  5. LISINOPRIL [Concomitant]
     Active Substance: LISINOPRIL
  6. SIMVASTATIN [Concomitant]
     Active Substance: SIMVASTATIN
  7. METFORMIN [Concomitant]
     Active Substance: METFORMIN HYDROCHLORIDE
  8. HYDROCHLOROTHIAZIDE [Concomitant]
     Active Substance: HYDROCHLOROTHIAZIDE
  9. FLUTICASONE [Concomitant]
     Active Substance: FLUTICASONE
  10. ATORVASTATIN CALCIUM [Concomitant]
     Active Substance: ATORVASTATIN CALCIUM
  11. TAMSULOSIN [Concomitant]
     Active Substance: TAMSULOSIN
  12. OXYCODONE [Concomitant]
     Active Substance: OXYCODONE
  13. AMOXICILLIN [Concomitant]
     Active Substance: AMOXICILLIN
  14. JARDIANCE [Concomitant]
     Active Substance: EMPAGLIFLOZIN
  15. AMLODIPINE BESYLATE [Concomitant]
     Active Substance: AMLODIPINE BESYLATE
  16. PIOGLITAZONE [Concomitant]
     Active Substance: PIOGLITAZONE
  17. PREDNISONE [Concomitant]
     Active Substance: PREDNISONE
  18. ACETAMINOPHEN\HYDROCODONE BITARTRATE [Concomitant]
     Active Substance: ACETAMINOPHEN\HYDROCODONE BITARTRATE
  19. CYCLOBENZAPRINE [Concomitant]
     Active Substance: CYCLOBENZAPRINE
  20. ASPIRIN [Concomitant]
     Active Substance: ASPIRIN
  21. BUTALBITAL [Concomitant]
     Active Substance: BUTALBITAL
  22. GENTAMICIN [Concomitant]
     Active Substance: GENTAMICIN
  23. VITAMIN D [Concomitant]
     Active Substance: VITAMIN D NOS
  24. IBUPROFEN [Concomitant]
     Active Substance: IBUPROFEN
  25. ACTOS [Concomitant]
     Active Substance: PIOGLITAZONE HYDROCHLORIDE

REACTIONS (10)
  - Fournier^s gangrene [Unknown]
  - Acute kidney injury [Unknown]
  - Sepsis [Unknown]
  - Scrotal abscess [Unknown]
  - Renal tubular necrosis [Unknown]
  - Renal failure [Unknown]
  - Chronic kidney disease [Unknown]
  - Wound dehiscence [Unknown]
  - Hypotension [Unknown]
  - Scrotal pain [Unknown]

NARRATIVE: CASE EVENT DATE: 20181211
